FAERS Safety Report 18771347 (Version 2)
Quarter: 2021Q1

REPORT INFORMATION
  Report Type: Report from Study
  Country: None (occurrence: JP)
  Receive Date: 20210121
  Receipt Date: 20210216
  Transmission Date: 20210419
  Serious: Yes (Hospitalization)
  Sender: FDA-Public Use
  Company Number: JP-ABBVIE-20P-087-3656361-00

PATIENT
  Age: 64 Year
  Sex: Female
  Weight: 37.8 kg

DRUGS (14)
  1. PREDNISOLONE. [Concomitant]
     Active Substance: PREDNISOLONE
     Indication: SPONDYLITIS
     Route: 048
     Dates: start: 20200313
  2. DOVONEX [Concomitant]
     Active Substance: CALCIPOTRIENE
     Indication: PSORIASIS
     Dosage: 1 APPLICATION
     Route: 061
     Dates: start: 20120604
  3. RISEDRONATE NA [Concomitant]
     Active Substance: RISEDRONATE SODIUM
     Indication: OSTEOPOROSIS PROPHYLAXIS
     Route: 048
     Dates: start: 20200626
  4. KETOPROFEN. [Concomitant]
     Active Substance: KETOPROFEN
     Indication: AXIAL SPONDYLOARTHRITIS
     Route: 061
     Dates: start: 20191227
  5. BETAMETHASONE BUTYRATE PROPIONATE [Concomitant]
     Active Substance: BETAMETHASONE BUTYRATE PROPIONATE
     Indication: PSORIASIS
     Dosage: 1 APPLICATION
     Route: 061
     Dates: start: 20200217
  6. LOXOPROFEN NA [Concomitant]
     Active Substance: LOXOPROFEN SODIUM
     Indication: AXIAL SPONDYLOARTHRITIS
     Route: 048
     Dates: start: 20200110, end: 20200124
  7. METHOTREXATE. [Concomitant]
     Active Substance: METHOTREXATE
     Indication: AXIAL SPONDYLOARTHRITIS
     Route: 048
     Dates: start: 20190927, end: 20201115
  8. REBAMIPIDE [Concomitant]
     Active Substance: REBAMIPIDE
     Indication: GASTRITIS PROPHYLAXIS
     Route: 048
     Dates: start: 20200508
  9. LOXOPROFEN NA [Concomitant]
     Active Substance: LOXOPROFEN SODIUM
     Route: 048
     Dates: start: 20200401
  10. FOLIAMIN [Concomitant]
     Active Substance: FOLIC ACID
     Indication: VITAMIN SUPPLEMENTATION
     Route: 048
     Dates: start: 20190626
  11. PASTARON SOFT [Concomitant]
     Indication: PSORIASIS
     Dosage: 1 APPLICATION
     Route: 061
     Dates: start: 20160418
  12. UPADACITINIB [Suspect]
     Active Substance: UPADACITINIB
     Indication: AXIAL SPONDYLOARTHRITIS
     Route: 048
     Dates: start: 20200603, end: 20200901
  13. UPADACITINIB [Suspect]
     Active Substance: UPADACITINIB
     Indication: AXIAL SPONDYLOARTHRITIS
     Route: 048
     Dates: start: 20200925, end: 20201115
  14. LANSOPRAZOLE OD [Concomitant]
     Active Substance: LANSOPRAZOLE
     Indication: PROPHYLAXIS AGAINST GASTROINTESTINAL ULCER
     Route: 048
     Dates: start: 20200313

REACTIONS (1)
  - Lymphoproliferative disorder [Not Recovered/Not Resolved]

NARRATIVE: CASE EVENT DATE: 20201116
